FAERS Safety Report 7157745-2 (Version None)
Quarter: 2010Q4

REPORT INFORMATION
  Report Type: 
  Country: None (occurrence: None)
  Receive Date: 20101214
  Receipt Date: 20100203
  Transmission Date: 20110411
  Serious: No
  Sender: FDA-Public Use
  Company Number: US-ASTRAZENECA-2010SE04843

PATIENT
  Sex: Female

DRUGS (2)
  1. CRESTOR [Suspect]
     Indication: BLOOD CHOLESTEROL INCREASED
     Route: 048
     Dates: start: 20080101, end: 20090723
  2. CRESTOR [Suspect]
     Route: 048
     Dates: start: 20090723

REACTIONS (2)
  - ANGIOGRAM ABNORMAL [None]
  - CHEST PAIN [None]
